FAERS Safety Report 21311753 (Version 1)
Quarter: 2022Q3

REPORT INFORMATION
  Report Type: Spontaneous
  Country: US (occurrence: None)
  Receive Date: 20220909
  Receipt Date: 20220909
  Transmission Date: 20221027
  Serious: No
  Sender: FDA-Public Use
  Company Number: US-FARMAPROD-202203-0408

PATIENT
  Sex: Male

DRUGS (7)
  1. OXERVATE [Suspect]
     Active Substance: CENEGERMIN-BKBJ
     Indication: Keratitis
     Route: 047
     Dates: start: 20220303
  2. ZINC [Concomitant]
     Active Substance: ZINC
  3. VITAMIN D [Concomitant]
     Active Substance: VITAMIN D NOS
  4. PROPRANOLOL HYDROCHLORIDE [Concomitant]
     Active Substance: PROPRANOLOL HYDROCHLORIDE
  5. MOXIFLOXACIN [Concomitant]
     Active Substance: MOXIFLOXACIN
  6. PREDNISOLONE NEPAFENAC [Concomitant]
  7. SERUM DROPS [Concomitant]

REACTIONS (1)
  - Ocular hyperaemia [Unknown]
